FAERS Safety Report 15865697 (Version 2)
Quarter: 2019Q4

REPORT INFORMATION
  Report Type: Spontaneous
  Country: US (occurrence: US)
  Receive Date: 20190125
  Receipt Date: 20191022
  Transmission Date: 20200122
  Serious: No
  Sender: FDA-Public Use
  Company Number: US-BIOGEN-2019BI00686827

PATIENT
  Sex: Female

DRUGS (15)
  1. LISINPRIL [Concomitant]
     Route: 050
  2. ZYRTEC [Concomitant]
     Active Substance: CETIRIZINE HYDROCHLORIDE
     Route: 050
  3. GABAPENTIN. [Concomitant]
     Active Substance: GABAPENTIN
     Route: 050
  4. BREO ELLIPTA [Concomitant]
     Active Substance: FLUTICASONE FUROATE\VILANTEROL TRIFENATATE
     Route: 050
  5. NEBULIZER [Concomitant]
     Active Substance: DEVICE
     Route: 050
  6. PREDNISONE. [Concomitant]
     Active Substance: PREDNISONE
     Route: 050
  7. BACLOFEN. [Concomitant]
     Active Substance: BACLOFEN
     Route: 050
  8. ASPIRIN. [Concomitant]
     Active Substance: ASPIRIN
     Route: 050
  9. TECFIDERA [Suspect]
     Active Substance: DIMETHYL FUMARATE
     Indication: MULTIPLE SCLEROSIS
     Dosage: TAKE 1 CAPSULE BY MOUTH TWICE A DAY
     Route: 050
     Dates: start: 20180613
  10. VITAMIN B12 [Concomitant]
     Active Substance: CYANOCOBALAMIN
     Route: 050
  11. SIMVASTATIN. [Concomitant]
     Active Substance: SIMVASTATIN
     Route: 050
  12. PANTOPRAZOLE [Concomitant]
     Active Substance: PANTOPRAZOLE
     Route: 050
  13. VITAMIN D3 [Concomitant]
     Active Substance: CHOLECALCIFEROL
     Route: 050
  14. VITAMIN B6 [Concomitant]
     Active Substance: PYRIDOXINE HYDROCHLORIDE
     Route: 050
  15. ALBUTEROL. [Concomitant]
     Active Substance: ALBUTEROL
     Route: 050

REACTIONS (1)
  - Psoriatic arthropathy [Unknown]
